FAERS Safety Report 4478787-1 (Version None)
Quarter: 2004Q4

REPORT INFORMATION
  Report Type: 
  Country: None (occurrence: None)
  Receive Date: 20040923
  Receipt Date: 20040803
  Transmission Date: 20050328
  Serious: No
  Sender: FDA-Public Use
  Company Number: USA040568814

PATIENT
  Age: 74 Year
  Sex: Female
  Weight: 68 kg

DRUGS (11)
  1. FORTEO [Suspect]
     Indication: OSTEOPOROSIS
     Dosage: 20 UG/L DAY
     Dates: start: 20040101
  2. SYNTHROID [Concomitant]
  3. PREVACID [Concomitant]
  4. PREDNISONE [Concomitant]
  5. FLORINEF [Concomitant]
  6. TOPROL XL (METOPROLOL ACETATE) [Concomitant]
  7. MICRO-K (POTASSIUM CHLORIDE) [Concomitant]
  8. FLONASE [Concomitant]
  9. ZOCOR [Concomitant]
  10. ASPIRIN [Concomitant]
  11. VIACTIV [Concomitant]

REACTIONS (7)
  - ARTHRALGIA [None]
  - BRONCHITIS [None]
  - CONJUNCTIVITIS INFECTIVE [None]
  - INJECTION SITE DISCOLOURATION [None]
  - INJECTION SITE HAEMORRHAGE [None]
  - MUSCLE CRAMP [None]
  - PAIN IN EXTREMITY [None]
